FAERS Safety Report 23107722 (Version 7)
Quarter: 2024Q3

REPORT INFORMATION
  Report Type: Spontaneous
  Country: CA (occurrence: CA)
  Receive Date: 20231026
  Receipt Date: 20240918
  Transmission Date: 20241016
  Serious: Yes (Other)
  Sender: CELLTRION
  Company Number: CA-CELLTRION INC.-2023CA004940

PATIENT

DRUGS (4)
  1. INFLECTRA [Suspect]
     Active Substance: INFLIXIMAB-DYYB
     Indication: Colitis ulcerative
     Dosage: 325 MG, EVERY 8 WEEKS
     Route: 042
     Dates: start: 20220510
  2. INFLECTRA [Suspect]
     Active Substance: INFLIXIMAB-DYYB
     Dosage: 325 MG, EVERY 8 WEEKS
     Route: 042
     Dates: start: 20230406
  3. INFLECTRA [Suspect]
     Active Substance: INFLIXIMAB-DYYB
     Dosage: 350 MG, EVERY 8 WEEKS
     Route: 042
  4. METHOTREXATE [Concomitant]
     Active Substance: METHOTREXATE
     Dosage: 1 DF

REACTIONS (16)
  - Sinusitis [Recovered/Resolved]
  - Breast disorder female [Recovered/Resolved]
  - Fatigue [Not Recovered/Not Resolved]
  - Infection [Unknown]
  - Emotional disorder [Unknown]
  - Crying [Unknown]
  - Speech disorder [Unknown]
  - Illness [Unknown]
  - Arthralgia [Not Recovered/Not Resolved]
  - Toothache [Not Recovered/Not Resolved]
  - COVID-19 [Recovering/Resolving]
  - Stress [Unknown]
  - Nasopharyngitis [Unknown]
  - Nasal discharge discolouration [Unknown]
  - Off label use [Unknown]
  - Intentional product use issue [Unknown]

NARRATIVE: CASE EVENT DATE: 20220101
